FAERS Safety Report 10010272 (Version 1)
Quarter: 2014Q1

REPORT INFORMATION
  Report Type: Report from Study
  Country: JP (occurrence: JP)
  Receive Date: 20140314
  Receipt Date: 20140314
  Transmission Date: 20141002
  Serious: Yes (Other)
  Sender: FDA-Public Use
  Company Number: JP-ABBVIE-14K-087-1212248-00

PATIENT
  Age: 44 Year
  Sex: Female
  Weight: 56 kg

DRUGS (3)
  1. LEUPRORELIN [Suspect]
     Indication: BREAST CANCER FEMALE
     Route: 058
     Dates: start: 20121120
  2. TS-1 [Suspect]
     Indication: BREAST CANCER FEMALE
     Route: 048
     Dates: start: 20130122
  3. NOLVADEX [Concomitant]
     Indication: PRODUCT USED FOR UNKNOWN INDICATION

REACTIONS (3)
  - Colitis ulcerative [Recovering/Resolving]
  - Phlebitis superficial [Recovered/Resolved]
  - Leukopenia [Recovered/Resolved]
